FAERS Safety Report 4281012-8 (Version None)
Quarter: 2004Q1

REPORT INFORMATION
  Report Type: 
  Country: None (occurrence: None)
  Receive Date: 20040122
  Receipt Date: 20030528
  Transmission Date: 20041129
  Serious: Yes (Hospitalization)
  Sender: FDA-Public Use
  Company Number: 03-000017

PATIENT
  Age: 16 Year
  Sex: Female

DRUGS (1)
  1. DORYX [Suspect]
     Indication: PHARYNGITIS STREPTOCOCCAL
     Dosage: 100 MG, ORAL
     Route: 048
     Dates: start: 20020523, end: 20020524

REACTIONS (1)
  - OESOPHAGEAL ULCER [None]
